FAERS Safety Report 7692436-0 (Version None)
Quarter: 2011Q3

REPORT INFORMATION
  Report Type: 
  Country: None (occurrence: None)
  Receive Date: 20110818
  Receipt Date: 20110808
  Transmission Date: 20111222
  Serious: Yes (Other)
  Sender: FDA-Public Use
  Company Number: US-GENENTECH-284626

PATIENT

DRUGS (12)
  1. BORTEZOMIB [Suspect]
     Route: 042
  2. DOXORUBICIN HCL [Suspect]
     Indication: MANTLE CELL LYMPHOMA
     Route: 040
  3. RITUXIMAB [Suspect]
     Dosage: 375 MG/M2, UNK
     Route: 065
  4. METHOTREXATE [Suspect]
     Indication: MANTLE CELL LYMPHOMA
     Dosage: 200 MG/M2, UNK
     Route: 042
  5. CYTARABINE [Suspect]
     Indication: MANTLE CELL LYMPHOMA
     Dosage: 3000 MG/M2, UNK
     Route: 042
  6. CYCLOPHOSPHAMIDE [Suspect]
     Indication: MANTLE CELL LYMPHOMA
     Dosage: 300 MG/M2, UNK
     Route: 065
  7. RITUXIMAB [Suspect]
     Indication: MANTLE CELL LYMPHOMA
     Dosage: 375 MG/M2, UNK
     Route: 065
  8. BORTEZOMIB [Suspect]
     Indication: MANTLE CELL LYMPHOMA
     Dosage: 1.3 MG/M2, UNK
     Route: 042
  9. VINCRISTINE [Suspect]
     Indication: MANTLE CELL LYMPHOMA
     Dosage: 1.4 MG/M2, UNK
     Route: 042
  10. PREDNISOLONE EYE DROPS [Concomitant]
     Indication: INFECTION PROPHYLAXIS
     Dosage: 2 GTT, QID
     Route: 065
  11. DEXAMETHASONE [Suspect]
     Indication: MANTLE CELL LYMPHOMA
     Dosage: 40 MG, UNK
  12. METHOTREXATE [Suspect]
     Dosage: 800 MG/M2, UNK
     Route: 042

REACTIONS (14)
  - THROMBOCYTOPENIA [None]
  - HYPERTENSION [None]
  - ANXIETY [None]
  - MANIA [None]
  - CULTURE POSITIVE [None]
  - NEUROPATHY PERIPHERAL [None]
  - CELLULITIS [None]
  - DYSARTHRIA [None]
  - DEVICE RELATED INFECTION [None]
  - ANAEMIA [None]
  - FEBRILE NEUTROPENIA [None]
  - LEUKOPENIA [None]
  - WOUND INFECTION [None]
  - NEUTROPENIA [None]
